FAERS Safety Report 5845152-1 (Version None)
Quarter: 2008Q3

REPORT INFORMATION
  Report Type: 
  Country: None (occurrence: None)
  Receive Date: 20080814
  Receipt Date: 20080805
  Transmission Date: 20090109
  Serious: Yes (Other)
  Sender: FDA-Public Use
  Company Number: PHHY2008CN07634

PATIENT
  Sex: Male

DRUGS (3)
  1. SEBIVO [Suspect]
     Indication: HEPATITIS B
     Dosage: 600 MG, QD
     Route: 048
     Dates: end: 20080601
  2. INTERFERON [Concomitant]
     Dosage: 500 IU, Q48H
     Dates: start: 20070901, end: 20071201
  3. PERIPHERAL NERVE NUTRITIONAL MEDICATIONS [Concomitant]

REACTIONS (4)
  - ELECTROMYOGRAM ABNORMAL [None]
  - HYPOAESTHESIA [None]
  - NEURALGIA [None]
  - NEUROPATHY PERIPHERAL [None]
